FAERS Safety Report 18160039 (Version 2)
Quarter: 2020Q3

REPORT INFORMATION
  Report Type: Report from Study
  Country: GT (occurrence: GT)
  Receive Date: 20200818
  Receipt Date: 20200909
  Transmission Date: 20201103
  Serious: Yes (Other)
  Sender: FDA-Public Use
  Company Number: GT-BIOGEN-2020BI00911302

PATIENT
  Age: 46 Year
  Sex: Female
  Weight: 59 kg

DRUGS (2)
  1. PREDNISOLONE. [Suspect]
     Active Substance: PREDNISOLONE
     Indication: INFLAMMATION
     Route: 065
  2. TYSABRI [Suspect]
     Active Substance: NATALIZUMAB
     Indication: RELAPSING MULTIPLE SCLEROSIS
     Route: 042
     Dates: start: 20140101

REACTIONS (6)
  - Pain [Recovered/Resolved]
  - Blood pressure inadequately controlled [Recovered/Resolved]
  - Hypoaesthesia [Recovered/Resolved]
  - Facial paralysis [Unknown]
  - Hypoaesthesia oral [Recovered/Resolved]
  - Multiple sclerosis relapse [Recovered/Resolved]

NARRATIVE: CASE EVENT DATE: 202002
